FAERS Safety Report 8595912-1 (Version None)
Quarter: 2012Q3

REPORT INFORMATION
  Report Type: 
  Country: None (occurrence: None)
  Receive Date: 20120815
  Receipt Date: 19950324
  Transmission Date: 20120928
  Serious: Yes (Hospitalization, Other)
  Sender: FDA-Public Use
  Company Number: US-ROCHE-1100579

PATIENT
  Sex: Male

DRUGS (8)
  1. NITROGLYCERIN [Concomitant]
     Dosage: THREE
     Route: 060
  2. ACTIVASE [Suspect]
     Indication: MYOCARDIAL INFARCTION
  3. NITROGLYCERIN [Concomitant]
     Dosage: TWO
     Route: 060
  4. LIDOCAINE [Concomitant]
     Route: 041
  5. MAGNESIUM SULFATE [Concomitant]
     Route: 040
  6. MORPHINE [Concomitant]
  7. LIDOCAINE [Concomitant]
     Route: 040
  8. MAGNESIUM SULFATE [Concomitant]
     Route: 041

REACTIONS (4)
  - VENTRICULAR EXTRASYSTOLES [None]
  - BRADYCARDIA [None]
  - TACHYCARDIA [None]
  - CHEST PAIN [None]
